FAERS Safety Report 5985269 (Version 19)
Quarter: 2013Q3

REPORT INFORMATION
  Report Type: Spontaneous
  Country: US (occurrence: US)
  Receive Date: 20060215
  Receipt Date: 20130814
  Transmission Date: 20140515
  Serious: Yes (Death, Hospitalization, Other)
  Sender: FDA-Public Use
  Company Number: PHEH2006US01838

PATIENT
  Age: 60 Year
  Sex: Female
  Weight: 64.4 kg

DRUGS (47)
  1. ZOMETA [Suspect]
     Indication: PLASMA CELL MYELOMA
     Dosage: 4 MG, QMO
     Route: 042
     Dates: start: 2003, end: 2005
  2. ZOMETA [Suspect]
     Indication: OSTEOLYSIS
  3. AREDIA [Suspect]
     Route: 042
  4. THALIDOMIDE [Concomitant]
     Indication: PLASMACYTOMA
  5. HYDROCHLOROTHIAZIDE [Concomitant]
     Indication: HYPERTENSION
     Route: 048
  6. K-DUR [Concomitant]
     Route: 048
  7. COZAAR [Concomitant]
     Indication: HYPERTENSION
     Dosage: 25 MG, QD
     Route: 048
  8. DECADRON [Concomitant]
     Indication: PLASMACYTOMA
  9. ARANESP [Concomitant]
  10. PEGINTRON ^SCHERING-PLOUGH^ [Concomitant]
     Indication: HEPATITIS C
  11. LEVAQUIN [Concomitant]
     Dosage: 250 MG, QD
     Route: 048
  12. ENDOCET [Concomitant]
     Dosage: 5-325 MG, PRN
     Route: 048
  13. PROMETHAZINE [Concomitant]
     Dosage: 25 MG, PRN
     Route: 048
  14. CYCLOBENZAPRINE [Concomitant]
     Dosage: 10 MG, TID
     Route: 048
  15. AMOX [Concomitant]
     Dosage: 875 MG, TID
     Route: 048
  16. OXYCODONE [Concomitant]
     Dosage: 5 MG, PRN
     Route: 048
  17. LISINOPRIL [Concomitant]
     Dosage: 20 MG, QD
     Route: 048
  18. Z-PAK [Concomitant]
     Dosage: 250 MG, QD
     Route: 048
  19. NORVASC                                 /DEN/ [Concomitant]
     Dosage: 10 MG, QD
     Route: 048
  20. SINGULAIR [Concomitant]
     Dosage: 10 MG, QD
     Route: 048
  21. BENZONATATE [Concomitant]
     Dosage: 100 MG, TID
     Route: 048
  22. METOPROLOL [Concomitant]
     Dosage: 50 MG, BID
     Route: 048
  23. INDERAL ^IMPERIAL CHEMICAL INDUSTRIES^ [Concomitant]
     Dosage: 80 MG, QD
     Route: 048
  24. NIFEDIAC [Concomitant]
     Dosage: 30 MG, QD
     Route: 048
  25. LUNESTA [Concomitant]
     Dosage: 2 MG, QHS
     Route: 048
  26. CLINDAMYCIN [Concomitant]
     Dosage: 1 %, TID
     Route: 061
  27. MORPHINE [Concomitant]
     Dosage: 15 MG, BID
     Route: 048
  28. OMEPRAZOLE [Concomitant]
     Dosage: 20 MG, BID
     Route: 048
  29. CIPROFLOXACIN [Concomitant]
     Dosage: 500 MG, BID
     Route: 048
  30. TERCONAZOLE [Concomitant]
     Dosage: 0.8 %, QHS
     Route: 067
  31. LASIX [Concomitant]
     Dosage: 20 MG, QD
     Route: 048
  32. DEXAMETHASONE [Concomitant]
  33. FAMOTIDINE [Concomitant]
  34. METRONIDAZOLE [Concomitant]
  35. CEFAZOLIN [Concomitant]
  36. DOXORUBICIN [Concomitant]
  37. ONDANSETRON [Concomitant]
  38. HYDROMORPHONE [Concomitant]
  39. STEROIDS NOS [Concomitant]
  40. GLUCOPHAGE [Concomitant]
  41. RADIATION THERAPY [Concomitant]
  42. ALDACTONE [Concomitant]
  43. MELPHALAN [Concomitant]
  44. HEPARIN [Concomitant]
  45. RIBAVIRIN [Concomitant]
  46. MEGACE [Concomitant]
  47. VELCADE [Concomitant]

REACTIONS (80)
  - Death [Fatal]
  - Osteonecrosis of jaw [Unknown]
  - Lymphadenopathy [Unknown]
  - Plasma cell myeloma [Unknown]
  - Joint injury [Unknown]
  - Infection [Unknown]
  - Necrosis [Unknown]
  - Osteoporosis [Unknown]
  - Tooth fracture [Unknown]
  - Blood glucose increased [Unknown]
  - Rhinitis allergic [Unknown]
  - Rash [Unknown]
  - Neuropathy peripheral [Unknown]
  - Hepatocellular carcinoma [Unknown]
  - Malignant neoplasm progression [Unknown]
  - Spondylitis [Unknown]
  - Bone density decreased [Unknown]
  - Thyroid disorder [Unknown]
  - Cholelithiasis [Unknown]
  - Splenomegaly [Unknown]
  - Pulmonary mass [Unknown]
  - Osteoarthritis [Unknown]
  - Haemangioma [Unknown]
  - Anaemia [Unknown]
  - Gastritis [Unknown]
  - Hepatic steatosis [Unknown]
  - Hypertension [Unknown]
  - Diabetes mellitus [Unknown]
  - Hypoglycaemia [Unknown]
  - Confusional state [Unknown]
  - Intervertebral disc degeneration [Unknown]
  - Varices oesophageal [Unknown]
  - Dysphagia [Unknown]
  - Carcinoembryonic antigen increased [Unknown]
  - Impaired gastric emptying [Unknown]
  - Abdominal pain [Unknown]
  - Pancytopenia [Unknown]
  - Neutropenia [Unknown]
  - Leukopenia [Unknown]
  - Thrombocytopenia [Unknown]
  - Hiatus hernia [Unknown]
  - Osteosclerosis [Unknown]
  - Gastrooesophageal reflux disease [Unknown]
  - Liver function test abnormal [Unknown]
  - Transaminases increased [Unknown]
  - Dyspepsia [Unknown]
  - Muscle strain [Unknown]
  - Back pain [Unknown]
  - Pollakiuria [Unknown]
  - Swelling face [Unknown]
  - Oedema peripheral [Unknown]
  - Somnolence [Unknown]
  - Dermatitis contact [Unknown]
  - Dizziness [Unknown]
  - Decreased appetite [Unknown]
  - Urinary incontinence [Unknown]
  - Metastases to bone [Unknown]
  - Atelectasis [Unknown]
  - Nephroptosis [Unknown]
  - Ascites [Unknown]
  - Haematuria [Unknown]
  - Tooth infection [Unknown]
  - Coagulopathy [Unknown]
  - Abdominal distension [Unknown]
  - Arteriosclerosis [Unknown]
  - Portal hypertension [Unknown]
  - Hepatic fibrosis [Unknown]
  - Chronic hepatic failure [Unknown]
  - Vascular occlusion [Unknown]
  - Post embolisation syndrome [Unknown]
  - Oliguria [Unknown]
  - Gait disturbance [Unknown]
  - Spinal osteoarthritis [Unknown]
  - Hepatic mass [Unknown]
  - Breast calcifications [Unknown]
  - Breast mass [Unknown]
  - Renal atrophy [Unknown]
  - Hepatic calcification [Unknown]
  - Hepatic lesion [Unknown]
  - Tricuspid valve incompetence [Unknown]
